APPROVED DRUG PRODUCT: DICLOFENAC POTASSIUM
Active Ingredient: DICLOFENAC POTASSIUM
Strength: 50MG
Dosage Form/Route: FOR SOLUTION;ORAL
Application: A216635 | Product #001 | TE Code: AB
Applicant: ALKEM LABORATORIES LTD
Approved: Jul 20, 2022 | RLD: No | RS: No | Type: RX